FAERS Safety Report 21522610 (Version 2)
Quarter: 2022Q4

REPORT INFORMATION
  Report Type: Spontaneous
  Country: AR (occurrence: AR)
  Receive Date: 20221029
  Receipt Date: 20221104
  Transmission Date: 20230113
  Serious: Yes (Hospitalization)
  Sender: FDA-Public Use
  Company Number: AR-ABBVIE-4179586

PATIENT
  Age: 51 Year
  Sex: Male

DRUGS (5)
  1. ADALIMUMAB [Suspect]
     Active Substance: ADALIMUMAB
     Indication: Axial spondyloarthritis
     Route: 058
     Dates: start: 202203
  2. MEPREDNISONE [Concomitant]
     Active Substance: MEPREDNISONE
     Indication: Product used for unknown indication
     Dosage: 40 MILLIGRAM
  3. SULFAMETHOXAZOLE\TRIMETHOPRIM [Concomitant]
     Active Substance: SULFAMETHOXAZOLE\TRIMETHOPRIM
     Indication: Product used for unknown indication
  4. CLARITHROMYCIN [Concomitant]
     Active Substance: CLARITHROMYCIN
     Indication: Product used for unknown indication
  5. LEVOFLOXACIN [Concomitant]
     Active Substance: LEVOFLOXACIN
     Indication: Product used for unknown indication

REACTIONS (11)
  - Limb injury [Unknown]
  - Skin mass [Unknown]
  - Gastrointestinal disorder [Unknown]
  - Spinal fracture [Unknown]
  - Oral candidiasis [Unknown]
  - Acid fast bacilli infection [Unknown]
  - Musculoskeletal disorder [Unknown]
  - Osteoporosis [Unknown]
  - Musculoskeletal disorder [Unknown]
  - Mycobacterium marinum infection [Unknown]
  - Pyrexia [Unknown]
